FAERS Safety Report 4514938-8 (Version None)
Quarter: 2004Q4

REPORT INFORMATION
  Report Type: 
  Country: None (occurrence: None)
  Receive Date: 20041129
  Receipt Date: 20041129
  Transmission Date: 20050328
  Serious: Yes (Other)
  Sender: FDA-Public Use
  Company Number: None

PATIENT
  Age: 28 Year
  Sex: Male
  Weight: 106.5953 kg

DRUGS (8)
  1. RISPERDAL [Suspect]
     Indication: HALLUCINATION, AUDITORY
     Dosage: 1MG  DAILY  ORAL
     Route: 048
     Dates: start: 20041118, end: 20041126
  2. RISPERDAL [Suspect]
     Indication: TEMPORAL LOBE EPILEPSY
     Dosage: 1MG  DAILY  ORAL
     Route: 048
     Dates: start: 20041118, end: 20041126
  3. RISPERDAL [Suspect]
     Indication: THINKING ABNORMAL
     Dosage: 1MG  DAILY  ORAL
     Route: 048
     Dates: start: 20041118, end: 20041126
  4. LAMICTAL [Concomitant]
  5. DILANTIN [Concomitant]
  6. CLONAZEPAM [Concomitant]
  7. PAXIL CR [Concomitant]
  8. VAGUS NERVE STIMULATOR - VNS [Concomitant]

REACTIONS (2)
  - DYSPHAGIA [None]
  - PHARYNGOLARYNGEAL PAIN [None]
